FAERS Safety Report 17914365 (Version 1)
Quarter: 2020Q2

REPORT INFORMATION
  Report Type: Report from Study
  Country: None (occurrence: IT)
  Receive Date: 20200619
  Receipt Date: 20200619
  Transmission Date: 20200714
  Serious: Yes (Death)
  Sender: FDA-Public Use
  Company Number: IT-ABBVIE-20K-083-3451690-00

PATIENT
  Age: 86 Year
  Sex: Male

DRUGS (1)
  1. DUODOPA [Suspect]
     Active Substance: CARBIDOPA\LEVODOPA
     Indication: PARKINSON^S DISEASE
     Dosage: MD: 5+3 ??CR: 4,3,??ED: 4
     Route: 050
     Dates: start: 20161003

REACTIONS (2)
  - General physical health deterioration [Fatal]
  - COVID-19 [Fatal]

NARRATIVE: CASE EVENT DATE: 202006
